FAERS Safety Report 8971671 (Version 1)
Quarter: 2012Q4

REPORT INFORMATION
  Report Type: 
  Country: US (occurrence: US)
  Receive Date: 20121217
  Receipt Date: 20121217
  Transmission Date: 20130627
  Serious: No
  Sender: FDA-Public Use
  Company Number: US-ABBOTT-12P-163-0917760-00

PATIENT

DRUGS (1)
  1. NIMBEX [Suspect]
     Indication: ENDOTRACHEAL INTUBATION

REACTIONS (5)
  - Tachyphylaxis [Unknown]
  - Drug ineffective [Not Recovered/Not Resolved]
  - Product measured potency issue [Not Recovered/Not Resolved]
  - Therapy regimen changed [Not Recovered/Not Resolved]
  - No therapeutic response [Not Recovered/Not Resolved]
